FAERS Safety Report 9119752 (Version 1)
Quarter: 2013Q1

REPORT INFORMATION
  Report Type: Spontaneous
  Country: US (occurrence: US)
  Receive Date: 20130207
  Receipt Date: 20130207
  Transmission Date: 20140127
  Serious: Yes (Hospitalization, Other)
  Sender: FDA-Public Use
  Company Number: PHHY2013US010075

PATIENT
  Age: 13 Year
  Sex: Male

DRUGS (2)
  1. OLANZAPINE [Suspect]
     Indication: BIPOLAR DISORDER
     Dosage: 15 MG, UNK
  2. LAMOTRIGINE [Suspect]
     Indication: BIPOLAR DISORDER
     Dosage: 200 MG, UNK

REACTIONS (4)
  - Electroencephalogram abnormal [Recovered/Resolved]
  - Hyperventilation [Recovered/Resolved]
  - Mood altered [Recovered/Resolved]
  - Drug withdrawal syndrome [Recovered/Resolved]
